FAERS Safety Report 7700376-3 (Version None)
Quarter: 2011Q3

REPORT INFORMATION
  Report Type: 
  Country: None (occurrence: None)
  Receive Date: 20110822
  Receipt Date: 20110817
  Transmission Date: 20111222
  Serious: Yes (Hospitalization, Other)
  Sender: FDA-Public Use
  Company Number: PHHY2011US73980

PATIENT
  Sex: Male
  Weight: 3.5 kg

DRUGS (1)
  1. METHYLERGONOVINE MALEATE [Suspect]
     Dosage: 0.2 MG, UNK
     Route: 030

REACTIONS (10)
  - OXYGEN SATURATION DECREASED [None]
  - DYSPNOEA [None]
  - HYPOTENSION [None]
  - HEART RATE INCREASED [None]
  - OLIGURIA [None]
  - BLOOD PRESSURE DECREASED [None]
  - WRONG DRUG ADMINISTERED [None]
  - RESPIRATORY DISTRESS [None]
  - CYANOSIS NEONATAL [None]
  - RESPIRATORY RATE INCREASED [None]
